FAERS Safety Report 19483735 (Version 1)
Quarter: 2021Q3

REPORT INFORMATION
  Report Type: Report from Study
  Country: KR (occurrence: KR)
  Receive Date: 20210701
  Receipt Date: 20210701
  Transmission Date: 20211014
  Serious: Yes (Other)
  Sender: FDA-Public Use
  Company Number: KR-EISAI MEDICAL RESEARCH-EC-2017-024672

PATIENT
  Age: 42 Year
  Sex: Female
  Weight: 45 kg

DRUGS (12)
  1. FYCOMPA [Suspect]
     Active Substance: PERAMPANEL
     Route: 048
     Dates: start: 20170622
  2. SABRIL POWD [Concomitant]
     Indication: SEIZURE
     Route: 048
     Dates: start: 20121121
  3. FYCOMPA [Suspect]
     Active Substance: PERAMPANEL
     Route: 048
     Dates: start: 20161222, end: 20170104
  4. ILDONG FOLIC ACID [Concomitant]
  5. FYCOMPA [Suspect]
     Active Substance: PERAMPANEL
     Route: 048
     Dates: start: 20170105, end: 20170523
  6. FOLIC ACID. [Concomitant]
     Active Substance: FOLIC ACID
     Indication: VITAMIN SUPPLEMENTATION
     Route: 048
  7. FYCOMPA [Suspect]
     Active Substance: PERAMPANEL
     Route: 048
     Dates: start: 20170524, end: 20170621
  8. SENTIL [Concomitant]
     Active Substance: CLOBAZAM
     Indication: SEIZURE
     Route: 048
     Dates: start: 20141125
  9. FYCOMPA [Suspect]
     Active Substance: PERAMPANEL
     Indication: EPILEPSY
     Route: 048
     Dates: start: 20161208, end: 20161221
  10. OXAZEPINE TAB [Concomitant]
     Indication: SEIZURE
     Route: 048
     Dates: start: 20160812
  11. EPILATAM TAB [Concomitant]
     Indication: SEIZURE
     Route: 048
     Dates: start: 20160324
  12. REMINYL PR [Concomitant]
     Indication: DEMENTIA ALZHEIMER^S TYPE
     Route: 048

REACTIONS (2)
  - Abortion spontaneous [Recovered/Resolved]
  - Exposure during pregnancy [Recovered/Resolved]

NARRATIVE: CASE EVENT DATE: 20170105
